FAERS Safety Report 7651293-9 (Version None)
Quarter: 2011Q3

REPORT INFORMATION
  Report Type: 
  Country: None (occurrence: None)
  Receive Date: 20110802
  Receipt Date: 20110728
  Transmission Date: 20111222
  Serious: Yes (Hospitalization)
  Sender: FDA-Public Use
  Company Number: US-CEPHALON-2010000519

PATIENT
  Sex: Female
  Weight: 64 kg

DRUGS (13)
  1. LOPID [Concomitant]
  2. CYCLOBENZAPRINE [Concomitant]
     Indication: OSTEOARTHRITIS
     Route: 048
     Dates: start: 20090717
  3. TREANDA [Suspect]
     Indication: NON-HODGKIN'S LYMPHOMA
     Route: 041
     Dates: start: 20090803, end: 20100119
  4. PROCHLORPERAZINE [Concomitant]
     Indication: PROPHYLAXIS OF NAUSEA AND VOMITING
     Route: 048
     Dates: start: 20090808
  5. ASPIRIN [Concomitant]
  6. AVAPRO [Concomitant]
  7. CELEBREX [Concomitant]
  8. PROVENTIL EFA [Concomitant]
  9. VYTORIN [Concomitant]
  10. AMLODIPINE [Concomitant]
  11. ZOFRAN [Concomitant]
     Indication: PROPHYLAXIS OF NAUSEA AND VOMITING
     Dates: start: 20100126
  12. RITUXAN [Suspect]
     Indication: NON-HODGKIN'S LYMPHOMA
     Route: 042
     Dates: start: 20090803, end: 20100118
  13. PREMARIN [Concomitant]

REACTIONS (1)
  - GASTROOESOPHAGEAL REFLUX DISEASE [None]
